FAERS Safety Report 18242318 (Version 1)
Quarter: 2020Q3

REPORT INFORMATION
  Report Type: Spontaneous
  Country: US (occurrence: US)
  Receive Date: 20200908
  Receipt Date: 20200908
  Transmission Date: 20201103
  Serious: No
  Sender: FDA-Public Use
  Company Number: US-HTU-2020US020583

PATIENT
  Sex: Female

DRUGS (5)
  1. TRIAMCINOLONE ACETONIDE. [Concomitant]
     Active Substance: TRIAMCINOLONE ACETONIDE
     Dosage: UNK
     Dates: start: 20200220
  2. VALCHLOR [Suspect]
     Active Substance: MECHLORETHAMINE
     Indication: CUTANEOUS T-CELL LYMPHOMA
     Dosage: UNK, QD
     Route: 061
  3. VALCHLOR [Suspect]
     Active Substance: MECHLORETHAMINE
     Dosage: UNK, 1/WEEK
     Route: 061
  4. CLOBETASOL [Concomitant]
     Active Substance: CLOBETASOL
     Dosage: UNK
     Dates: start: 20200220
  5. CETIRIZINE HYDROCHLORIDE. [Concomitant]
     Active Substance: CETIRIZINE HYDROCHLORIDE

REACTIONS (5)
  - Erythema [Unknown]
  - Application site swelling [Recovered/Resolved]
  - Intentional product use issue [Unknown]
  - Skin swelling [Unknown]
  - Pain of skin [Unknown]
